FAERS Safety Report 25341368 (Version 2)
Quarter: 2025Q2

REPORT INFORMATION
  Report Type: Report from Study
  Country: CA (occurrence: CA)
  Receive Date: 20250521
  Receipt Date: 20250617
  Transmission Date: 20250717
  Serious: Yes (Other)
  Sender: TAKEDA
  Company Number: CA-TAKEDA-2025TUS031138

PATIENT
  Sex: Female

DRUGS (7)
  1. LANADELUMAB [Suspect]
     Active Substance: LANADELUMAB
     Indication: Hereditary angioedema
     Dosage: UNK UNK, Q2WEEKS
     Dates: start: 20250319
  2. LANADELUMAB [Suspect]
     Active Substance: LANADELUMAB
     Indication: Hereditary angioedema with C1 esterase inhibitor deficiency
     Dosage: UNK UNK, Q2WEEKS
  3. LANADELUMAB [Suspect]
     Active Substance: LANADELUMAB
     Dosage: UNK UNK, Q2WEEKS
  4. ICATIBANT [Suspect]
     Active Substance: ICATIBANT ACETATE
     Indication: Hereditary angioedema
  5. ICATIBANT [Suspect]
     Active Substance: ICATIBANT ACETATE
  6. BERINERT [Concomitant]
     Active Substance: HUMAN C1-ESTERASE INHIBITOR
  7. DANAZOL [Concomitant]
     Active Substance: DANAZOL

REACTIONS (6)
  - Respiratory distress [Unknown]
  - Inability to afford medication [Unknown]
  - Bedridden [Recovering/Resolving]
  - Inappropriate schedule of product administration [Unknown]
  - Computerised tomogram abdomen abnormal [Unknown]
  - Hereditary angioedema [Recovering/Resolving]
